FAERS Safety Report 12175459 (Version 1)
Quarter: 2016Q1

REPORT INFORMATION
  Report Type: Spontaneous
  Country: US (occurrence: US)
  Receive Date: 20160314
  Receipt Date: 20160314
  Transmission Date: 20160526
  Serious: Yes (Hospitalization)
  Sender: FDA-Public Use
  Company Number: US-TEVA-642114USA

PATIENT
  Age: 46 Year
  Sex: Female

DRUGS (2)
  1. ZECUITY [Suspect]
     Active Substance: SUMATRIPTAN SUCCINATE
     Indication: HEADACHE
     Route: 062
     Dates: start: 201601, end: 201601
  2. ZECUITY [Suspect]
     Active Substance: SUMATRIPTAN SUCCINATE
     Dosage: HAS USED 7 PATCHES FROM 2 DIFFERENT BOXES IN JAN-2016 AND FEB-2016
     Route: 062
     Dates: start: 201602, end: 201602

REACTIONS (4)
  - Intervertebral disc operation [Unknown]
  - Device battery issue [Unknown]
  - Underdose [Unknown]
  - Application site erythema [Recovered/Resolved]

NARRATIVE: CASE EVENT DATE: 2016
